FAERS Safety Report 8947279 (Version 2)
Quarter: 2012Q4

REPORT INFORMATION
  Report Type: 
  Country: GB (occurrence: GB)
  Receive Date: 20121205
  Receipt Date: 20121211
  Transmission Date: 20130627
  Serious: Yes (Hospitalization)
  Sender: FDA-Public Use
  Company Number: GB-GLAXOSMITHKLINE-B0848642A

PATIENT
  Age: 65 Year
  Sex: Male

DRUGS (3)
  1. ARZERRA [Suspect]
     Indication: CHRONIC LYMPHOCYTIC LEUKAEMIA
     Route: 042
     Dates: start: 20120628
  2. ACICLOVIR [Concomitant]
     Indication: CHRONIC LYMPHOCYTIC LEUKAEMIA
     Dosage: 200MG Four times per day
     Route: 048
     Dates: start: 201201
  3. CO TRIMOXAZOLE [Concomitant]
     Indication: CHRONIC LYMPHOCYTIC LEUKAEMIA
     Dosage: 960MG Alternate days
     Route: 048
     Dates: start: 201201

REACTIONS (1)
  - Urinary tract infection pseudomonal [Recovered/Resolved]
